FAERS Safety Report 7793528-8 (Version None)
Quarter: 2011Q4

REPORT INFORMATION
  Report Type: 
  Country: None (occurrence: None)
  Receive Date: 20111003
  Receipt Date: 20110926
  Transmission Date: 20120403
  Serious: Yes (Death, Hospitalization, Other)
  Sender: FDA-Public Use
  Company Number: US-BAYER-200939927NA

PATIENT
  Age: 66 Year
  Sex: Female
  Weight: 85.714 kg

DRUGS (13)
  1. METFORMIN HCL [Concomitant]
     Dosage: 500 MG, BID
     Route: 048
  2. NIPRIDE [Concomitant]
     Dosage: UNK
     Route: 042
     Dates: start: 20060526, end: 20060526
  3. LEVOPHED [Concomitant]
     Dosage: UNK
     Route: 042
     Dates: start: 20060526, end: 20060526
  4. TOPROL-XL [Concomitant]
     Dosage: 50 MG, QD
     Route: 048
  5. LIDOCAINE [Concomitant]
     Dosage: 200 MG, UNK
     Route: 042
     Dates: start: 20060526, end: 20060526
  6. MIDAZOLAM HCL [Concomitant]
     Dosage: UNK
     Route: 042
     Dates: start: 20060526, end: 20060526
  7. PRIMACOR [Concomitant]
     Dosage: UNK
     Route: 042
     Dates: start: 20060526, end: 20060526
  8. PROTAMINE [Concomitant]
     Dosage: UNK
     Route: 042
     Dates: start: 20060526, end: 20060526
  9. GLUCOTROL [Concomitant]
     Dosage: 5 MG, BID
     Route: 048
  10. TRASYLOL [Suspect]
     Indication: CORONARY ARTERY BYPASS
     Dosage: 200 CC; THEN 50CC/HR INFUSION
     Route: 042
     Dates: start: 20060526, end: 20060526
  11. LISINOPRIL [Concomitant]
     Dosage: 10 MG, QD
     Route: 048
  12. ALEVE (CAPLET) [Concomitant]
     Dosage: AS NEEDED
     Route: 048
  13. HEPARIN [Concomitant]
     Dosage: UNK
     Route: 042
     Dates: start: 20060526, end: 20060526

REACTIONS (14)
  - ANHEDONIA [None]
  - DEATH [None]
  - RENAL INJURY [None]
  - INJURY [None]
  - CARDIOGENIC SHOCK [None]
  - PAIN [None]
  - ANXIETY [None]
  - MULTI-ORGAN FAILURE [None]
  - STRESS [None]
  - RENAL FAILURE [None]
  - RENAL IMPAIRMENT [None]
  - EMOTIONAL DISTRESS [None]
  - UNEVALUABLE EVENT [None]
  - FEAR [None]
